FAERS Safety Report 8117697-5 (Version None)
Quarter: 2012Q1

REPORT INFORMATION
  Report Type: 
  Country: None (occurrence: None)
  Receive Date: 20120203
  Receipt Date: 20120203
  Transmission Date: 20120608
  Serious: Yes (Death)
  Sender: FDA-Public Use
  Company Number: None

PATIENT
  Sex: Female

DRUGS (1)
  1. PEG-INTRON [Suspect]
     Dosage: 30 MCG/0.3 ML WEEKLY SUBCUTANEOUSLY
     Route: 058
     Dates: start: 20100901, end: 20101109

REACTIONS (1)
  - DEATH [None]
